FAERS Safety Report 7412536-X (Version None)
Quarter: 2011Q2

REPORT INFORMATION
  Report Type: 
  Country: None (occurrence: None)
  Receive Date: 20110413
  Receipt Date: 20110407
  Transmission Date: 20111010
  Serious: No
  Sender: FDA-Public Use
  Company Number: BR-US-EMD SERONO, INC.-7049764

PATIENT
  Sex: Female

DRUGS (3)
  1. UNKNOWN FORMULATION [Concomitant]
  2. REBIF [Suspect]
     Indication: RELAPSING-REMITTING MULTIPLE SCLEROSIS
     Dates: start: 20101020
  3. PRISTIQ [Concomitant]

REACTIONS (2)
  - WEIGHT INCREASED [None]
  - MUSCULAR WEAKNESS [None]
